FAERS Safety Report 16285669 (Version 1)
Quarter: 2019Q2

REPORT INFORMATION
  Report Type: Spontaneous
  Country: US (occurrence: US)
  Receive Date: 20190508
  Receipt Date: 20190508
  Transmission Date: 20190711
  Serious: Yes (Hospitalization)
  Sender: FDA-Public Use
  Company Number: US-JNJFOC-20190501435

PATIENT
  Age: 66 Year
  Sex: Male

DRUGS (12)
  1. IBRUTINIB [Suspect]
     Active Substance: IBRUTINIB
     Indication: CHRONIC LYMPHOCYTIC LEUKAEMIA RECURRENT
     Route: 065
  2. IBRUTINIB [Suspect]
     Active Substance: IBRUTINIB
     Indication: CHRONIC LYMPHOCYTIC LEUKAEMIA RECURRENT
     Route: 065
  3. BENDAMUSTINE HYDROCHLORIDE. [Suspect]
     Active Substance: BENDAMUSTINE HYDROCHLORIDE
     Indication: CHRONIC LYMPHOCYTIC LEUKAEMIA RECURRENT
     Dosage: SIX CYCLES)
     Route: 042
     Dates: start: 2008, end: 2009
  4. PREDNISONE. [Suspect]
     Active Substance: PREDNISONE
     Indication: CHRONIC LYMPHOCYTIC LEUKAEMIA
     Route: 065
     Dates: start: 2005
  5. CYCLOPHOSPHAMIDE. [Suspect]
     Active Substance: CYCLOPHOSPHAMIDE
     Indication: CHRONIC LYMPHOCYTIC LEUKAEMIA RECURRENT
     Route: 065
  6. RITUXIMAB. [Suspect]
     Active Substance: RITUXIMAB
     Indication: CHRONIC LYMPHOCYTIC LEUKAEMIA RECURRENT
     Dosage: CYCLIC
     Route: 065
     Dates: start: 201408
  7. CHLORAMBUCIL [Suspect]
     Active Substance: CHLORAMBUCIL
     Indication: CHRONIC LYMPHOCYTIC LEUKAEMIA
     Route: 065
     Dates: start: 2005
  8. PENTOSTATIN. [Suspect]
     Active Substance: PENTOSTATIN
     Indication: CHRONIC LYMPHOCYTIC LEUKAEMIA RECURRENT
     Dosage: AS A PART OF PCR CHEMOTHERAPY
     Route: 065
  9. IBRUTINIB [Suspect]
     Active Substance: IBRUTINIB
     Indication: CHRONIC LYMPHOCYTIC LEUKAEMIA RECURRENT
     Route: 065
  10. BENDAMUSTINE HYDROCHLORIDE. [Suspect]
     Active Substance: BENDAMUSTINE HYDROCHLORIDE
     Indication: CHRONIC LYMPHOCYTIC LEUKAEMIA RECURRENT
     Route: 042
     Dates: start: 201408
  11. RITUXIMAB. [Suspect]
     Active Substance: RITUXIMAB
     Indication: CHRONIC LYMPHOCYTIC LEUKAEMIA RECURRENT
     Dosage: (SIX CYCLES)
     Route: 065
     Dates: start: 2008, end: 2009
  12. RITUXIMAB. [Suspect]
     Active Substance: RITUXIMAB
     Indication: CHRONIC LYMPHOCYTIC LEUKAEMIA RECURRENT
     Route: 065

REACTIONS (5)
  - Pancreatitis [Recovering/Resolving]
  - Cryptococcosis [Recovering/Resolving]
  - Bronchitis [Recovering/Resolving]
  - Sinusitis [Recovering/Resolving]
  - Encephalitis [Recovering/Resolving]
